FAERS Safety Report 6240287-6 (Version None)
Quarter: 2009Q2

REPORT INFORMATION
  Report Type: 
  Country: None (occurrence: None)
  Receive Date: 20090623
  Receipt Date: 20080603
  Transmission Date: 20091009
  Serious: No
  Sender: FDA-Public Use
  Company Number: US-ASTRAZENECA-2008UW11162

PATIENT
  Sex: Female

DRUGS (2)
  1. PULMICORT RESPULES [Suspect]
     Route: 055
  2. ALBUTEROL [Suspect]

REACTIONS (2)
  - COUGH [None]
  - WRONG TECHNIQUE IN DRUG USAGE PROCESS [None]
